FAERS Safety Report 4935074-2 (Version None)
Quarter: 2006Q1

REPORT INFORMATION
  Report Type: 
  Country: None (occurrence: None)
  Receive Date: 20060302
  Receipt Date: 20060223
  Transmission Date: 20060701
  Serious: Yes (Death)
  Sender: FDA-Public Use
  Company Number: 2006US000393

PATIENT
  Age: 62 Year
  Sex: Male
  Weight: 113.4 kg

DRUGS (1)
  1. ADENOSCAN [Suspect]
     Indication: SCAN MYOCARDIAL PERFUSION
     Dosage: 95 MG, TOTAL DOSE, IV NOS
     Route: 042
     Dates: start: 20060223, end: 20060223

REACTIONS (1)
  - DYSPNOEA [None]
